FAERS Safety Report 24170681 (Version 1)
Quarter: 2024Q3

REPORT INFORMATION
  Report Type: Spontaneous
  Country: US (occurrence: None)
  Receive Date: 20240803
  Receipt Date: 20240803
  Transmission Date: 20241017
  Serious: Yes (Other)
  Sender: Public
  Company Number: None

PATIENT
  Sex: Female

DRUGS (1)
  1. CAPECITABINE [Suspect]
     Active Substance: CAPECITABINE
     Indication: Pancreatic carcinoma
     Dosage: FREQ: TAKE 2 TABLETS BY MOUTH TWICE DAILY MONDAY THROUGH FRIDAY WITH RADIATION FOR 6 WEEKS.  (OFF ON
     Route: 048

REACTIONS (1)
  - Pancreatic operation [None]
